FAERS Safety Report 9399347 (Version 1)
Quarter: 2013Q3

REPORT INFORMATION
  Report Type: Spontaneous
  Country: US (occurrence: US)
  Receive Date: 20130715
  Receipt Date: 20130715
  Transmission Date: 20140515
  Serious: No
  Sender: FDA-Public Use
  Company Number: US-PFIZER INC-2013205339

PATIENT
  Age: 67 Year
  Sex: Female
  Weight: 92.06 kg

DRUGS (1)
  1. LIPITOR [Suspect]
     Indication: BLOOD CHOLESTEROL INCREASED
     Dosage: 10 MG, DAILY
     Route: 048
     Dates: start: 2007, end: 2008

REACTIONS (2)
  - Muscle tightness [Recovered/Resolved]
  - Arthralgia [Recovered/Resolved]
